FAERS Safety Report 17470642 (Version 2)
Quarter: 2020Q1

REPORT INFORMATION
  Report Type: Spontaneous
  Country: US (occurrence: US)
  Receive Date: 20200228
  Receipt Date: 20200308
  Transmission Date: 20200409
  Serious: No
  Sender: FDA-Public Use
  Company Number: US-TEVA-2020-US-1189481

PATIENT
  Age: 69 Year
  Sex: Female

DRUGS (4)
  1. BUPRENORPHINE TRANSDERMAL SYSTEM [Suspect]
     Active Substance: BUPRENORPHINE
     Route: 062
  2. TYLENOL [Concomitant]
     Active Substance: ACETAMINOPHEN
     Route: 065
  3. BUPRENORPHINE TRANSDERMAL SYSTEM [Suspect]
     Active Substance: BUPRENORPHINE
     Indication: PAIN IN EXTREMITY
     Route: 062
     Dates: start: 201910
  4. IBUPROFEN. [Concomitant]
     Active Substance: IBUPROFEN
     Route: 065

REACTIONS (6)
  - Skin discolouration [Recovering/Resolving]
  - Pruritus [Unknown]
  - Scab [Unknown]
  - Application site erythema [Unknown]
  - Application site pruritus [Unknown]
  - Application site discharge [Unknown]

NARRATIVE: CASE EVENT DATE: 20200221
